FAERS Safety Report 22067506 (Version 3)
Quarter: 2023Q2

REPORT INFORMATION
  Report Type: Spontaneous
  Country: US (occurrence: US)
  Receive Date: 20230307
  Receipt Date: 20230427
  Transmission Date: 20230721
  Serious: No
  Sender: FDA-Public Use
  Company Number: US-JNJFOC-20230305724

PATIENT
  Age: 68 Year
  Sex: Female
  Weight: 72.640 kg

DRUGS (1)
  1. TREMFYA [Suspect]
     Active Substance: GUSELKUMAB
     Indication: Psoriasis
     Route: 065

REACTIONS (5)
  - Device failure [Unknown]
  - Device issue [Unknown]
  - Product dose omission issue [Unknown]
  - Product complaint [Unknown]
  - Physical product label issue [Unknown]

NARRATIVE: CASE EVENT DATE: 20230228
